FAERS Safety Report 5117271-9 (Version None)
Quarter: 2006Q3

REPORT INFORMATION
  Report Type: 
  Country: None (occurrence: None)
  Receive Date: 20060927
  Receipt Date: 20060927
  Transmission Date: 20061208
  Serious: Yes (Other)
  Sender: FDA-Public Use
  Company Number: None

PATIENT
  Sex: Female
  Weight: 52.1637 kg

DRUGS (2)
  1. FLUOXETINE [Suspect]
     Indication: HEAD INJURY
     Dosage: 10 MG 1 TIME A DAY PO
     Route: 048
     Dates: start: 20060202, end: 20060307
  2. FLUOXETINE [Suspect]
     Indication: MIGRAINE
     Dosage: 10 MG 1 TIME A DAY PO
     Route: 048
     Dates: start: 20060202, end: 20060307

REACTIONS (9)
  - CONFUSIONAL STATE [None]
  - DIZZINESS [None]
  - FATIGUE [None]
  - FORMICATION [None]
  - IRRITABILITY [None]
  - MALAISE [None]
  - MIGRAINE [None]
  - NAUSEA [None]
  - THINKING ABNORMAL [None]
